FAERS Safety Report 17048328 (Version 2)
Quarter: 2019Q4

REPORT INFORMATION
  Report Type: Report from Study
  Country: JP (occurrence: JP)
  Receive Date: 20191119
  Receipt Date: 20191226
  Transmission Date: 20200122
  Serious: Yes (Death, Life-Threatening, Other)
  Sender: FDA-Public Use
  Company Number: JP-ASTELLAS-2019JP025788

PATIENT
  Age: 5 Decade
  Sex: Female
  Weight: 51 kg

DRUGS (3)
  1. BAYASPIRIN [Concomitant]
     Active Substance: ASPIRIN
     Indication: CEREBRAL INFARCTION
     Dosage: 100 MG/DAY, UNKNOWN FREQ.
     Route: 048
  2. ASP2215 [Suspect]
     Active Substance: GILTERITINIB
     Indication: ACUTE MYELOID LEUKAEMIA REFRACTORY
     Route: 048
     Dates: start: 20190427, end: 20190508
  3. CEFMETAZOLE [Suspect]
     Active Substance: CEFMETAZOLE
     Indication: PNEUMONIA
     Dosage: 2 G/DAY, UNKNOWN FREQ.
     Route: 042

REACTIONS (4)
  - Infection [Unknown]
  - Liver disorder [Recovered/Resolved]
  - Haemoptysis [Unknown]
  - Death [Fatal]

NARRATIVE: CASE EVENT DATE: 20190429
